FAERS Safety Report 8035545-9 (Version None)
Quarter: 2012Q1

REPORT INFORMATION
  Report Type: 
  Country: None (occurrence: None)
  Receive Date: 20120110
  Receipt Date: 20120110
  Transmission Date: 20120608
  Serious: No
  Sender: FDA-Public Use
  Company Number: None

PATIENT

DRUGS (3)
  1. ASPERCREME TROLAMINE SALICYLATE 10% PAIN RELIEVING CREME [Suspect]
     Indication: MYALGIA
     Dates: start: 20111001
  2. ASPERCREME TROLAMINE SALICYLATE 10% PAIN RELIEVING CREME [Suspect]
     Indication: MYALGIA
     Dates: start: 20111201
  3. ASPERCREME TROLAMINE SALICYLATE 10% PAIN RELIEVING CREME [Suspect]
     Indication: MYALGIA
     Dates: start: 20111101

REACTIONS (3)
  - OEDEMA PERIPHERAL [None]
  - PAIN IN EXTREMITY [None]
  - HYPOAESTHESIA [None]
